FAERS Safety Report 7046793-9 (Version None)
Quarter: 2010Q4

REPORT INFORMATION
  Report Type: 
  Country: None (occurrence: None)
  Receive Date: 20101015
  Receipt Date: 20101004
  Transmission Date: 20110411
  Serious: Yes (Hospitalization, Other)
  Sender: FDA-Public Use
  Company Number: US-TYCO HEALTHCARE/MALLINCKRODT-T200901940

PATIENT
  Sex: Female
  Weight: 83.9 kg

DRUGS (18)
  1. OPTIMARK [Suspect]
     Indication: ANGIOGRAM
     Dosage: UNK
     Route: 042
     Dates: start: 20050908, end: 20050908
  2. OPTIMARK [Suspect]
     Dosage: UNK
     Route: 042
     Dates: start: 20060309, end: 20060309
  3. OPTIMARK [Suspect]
     Indication: NUCLEAR MAGNETIC RESONANCE IMAGING
     Dosage: UNK
     Route: 042
     Dates: start: 20060713, end: 20060713
  4. OMNISCAN [Suspect]
     Indication: ANGIOGRAM
     Dosage: UNK
     Route: 042
     Dates: start: 20050204, end: 20050204
  5. CONTRAST MEDIA [Suspect]
     Indication: ANGIOGRAM
     Dosage: UNK
     Route: 042
     Dates: start: 20050201, end: 20050201
  6. CONTRAST MEDIA [Suspect]
     Dosage: UNK
     Dates: start: 20050303, end: 20050303
  7. TOPROL-XL [Concomitant]
     Dosage: 50 MG, QD
  8. COUMADIN [Concomitant]
     Dosage: 7 MG, QD
  9. ASPIRIN [Concomitant]
     Dosage: 81 MG, QD
  10. LIPITOR [Concomitant]
     Dosage: 40 MG, QD
  11. ENALAPRIL MALEATE [Concomitant]
     Dosage: 20 MG, QD
  12. PREDNISONE [Concomitant]
     Dosage: 5 MG, QD
  13. CELLCEPT [Concomitant]
     Dosage: 500 MG, BID
  14. SODIUM BICARBONATE [Concomitant]
  15. PROCRIT                            /00909301/ [Concomitant]
     Dosage: 20.000 UNITS, Q WEEKLY
  16. NEXIUM [Concomitant]
     Dosage: 40 MG, QD
  17. IRON SULFATETHIAMIN COMPOUND TAB [Concomitant]
     Dosage: 324 MG, BID
  18. PROGRAF [Concomitant]

REACTIONS (16)
  - ADENOMYOSIS [None]
  - ATRIAL FIBRILLATION [None]
  - CARDIOGENIC SHOCK [None]
  - KIDNEY TRANSPLANT REJECTION [None]
  - LOCALISED INTRAABDOMINAL FLUID COLLECTION [None]
  - NEPHROGENIC SYSTEMIC FIBROSIS [None]
  - OCULAR HYPERAEMIA [None]
  - OFF LABEL USE [None]
  - OVARIAN CYST [None]
  - PULMONARY HYPERTENSION [None]
  - RASH PAPULAR [None]
  - RENAL CYST [None]
  - RESPIRATORY FAILURE [None]
  - SHOCK [None]
  - SPLENOMEGALY [None]
  - UTERINE LEIOMYOMA [None]
